FAERS Safety Report 7042291-7 (Version None)
Quarter: 2010Q4

REPORT INFORMATION
  Report Type: 
  Country: None (occurrence: None)
  Receive Date: 20101013
  Receipt Date: 20100526
  Transmission Date: 20110411
  Serious: No
  Sender: FDA-Public Use
  Company Number: US-ASTRAZENECA-2010SE24351

PATIENT
  Sex: Female
  Weight: 83.9 kg

DRUGS (7)
  1. SYMBICORT [Suspect]
     Indication: CHRONIC OBSTRUCTIVE PULMONARY DISEASE
     Dosage: TOTAL DAILY DOSAGE: 160 MCG
     Route: 055
  2. LIPITOR [Concomitant]
  3. ACTOS [Concomitant]
  4. SPIRIVA [Concomitant]
  5. GLYPIZIDE [Concomitant]
  6. LEVOTHYROXINE [Concomitant]
  7. OMEPRAZOLE [Concomitant]

REACTIONS (2)
  - ORAL CANDIDIASIS [None]
  - PHOTOPHOBIA [None]
